FAERS Safety Report 4263721-X (Version None)
Quarter: 2004Q1

REPORT INFORMATION
  Report Type: 
  Country: None (occurrence: None)
  Receive Date: 20040102
  Receipt Date: 20031219
  Transmission Date: 20041129
  Serious: Yes (Other)
  Sender: FDA-Public Use
  Company Number: EWC031237250

PATIENT
  Age: 42 Year
  Sex: Male
  Weight: 114 kg

DRUGS (3)
  1. HUMATROPE [Suspect]
     Indication: BLOOD GROWTH HORMONE
     Dosage: 0.1 MG/DAY
     Dates: start: 19920101, end: 20031119
  2. HYDROCORTISONE [Concomitant]
  3. SUSTANON [Concomitant]

REACTIONS (3)
  - COLON CANCER STAGE IV [None]
  - METASTASES TO LIVER [None]
  - METASTASES TO LUNG [None]
